FAERS Safety Report 5809162-2 (Version None)
Quarter: 2008Q3

REPORT INFORMATION
  Report Type: 
  Country: None (occurrence: None)
  Receive Date: 20080714
  Receipt Date: 20080702
  Transmission Date: 20090109
  Serious: Yes (Other)
  Sender: FDA-Public Use
  Company Number: JP-PFIZER INC-2008048058

PATIENT
  Sex: Female

DRUGS (5)
  1. CHANTIX [Suspect]
     Route: 048
  2. SODIUM HYPOCHLORITE [Suspect]
     Route: 058
  3. CRESTOR [Concomitant]
     Route: 048
  4. PLETAL [Concomitant]
     Route: 048
  5. LENDORMIN [Concomitant]
     Route: 048

REACTIONS (1)
  - FACE OEDEMA [None]
